FAERS Safety Report 7067123 (Version 2)
Quarter: 2013Q4

REPORT INFORMATION
  Report Type: Spontaneous
  Country: US (occurrence: None)
  Receive Date: 20090723
  Receipt Date: 20131227
  Transmission Date: 20140711
  Serious: Yes (Other)
  Sender: FDA-Public Use
  Company Number: 2009S1005533

PATIENT
  Age: 50 Year
  Sex: Male
  Weight: 120.3 kg

DRUGS (2)
  1. FLEET PHOSPHO-SODA [Suspect]
     Route: 048
  2. SKELATIN (METAXALONE) [Concomitant]

REACTIONS (1)
  - Renal failure [None]
